FAERS Safety Report 9419010 (Version 4)
Quarter: 2014Q2

REPORT INFORMATION
  Report Type: Spontaneous
  Country: US (occurrence: US)
  Receive Date: 20130725
  Receipt Date: 20140416
  Transmission Date: 20141212
  Serious: Yes (Other)
  Sender: FDA-Public Use
  Company Number: PHEH2013US015460

PATIENT
  Sex: Male

DRUGS (7)
  1. VALTURNA [Suspect]
     Indication: HYPERTENSION
     Dosage: UNK UKN, UNK
     Route: 048
     Dates: start: 201007, end: 201112
  2. AMLODIPINE BESYLATE [Concomitant]
  3. AUGMENTAN ORAL [Concomitant]
  4. CARVEDIOL [Concomitant]
  5. DIGOXIN [Concomitant]
  6. GLIPIZIDE [Concomitant]
  7. SIMVASTATIN [Concomitant]

REACTIONS (19)
  - Cerebrovascular accident [Unknown]
  - Diabetes mellitus [Unknown]
  - Cardiac failure congestive [Unknown]
  - Cardiomyopathy [Unknown]
  - Transient ischaemic attack [Unknown]
  - Cerebral infarction [Unknown]
  - Dysarthria [Unknown]
  - Blindness unilateral [Unknown]
  - Encephalomalacia [Unknown]
  - Diabetic neuropathy [Unknown]
  - Renal failure chronic [Unknown]
  - Brain stem infarction [Unknown]
  - Muscle spasticity [Unknown]
  - Muscular weakness [Unknown]
  - Movement disorder [Unknown]
  - Coordination abnormal [Unknown]
  - Dyslipidaemia [Unknown]
  - Injury [Unknown]
  - Pallor [Unknown]
